FAERS Safety Report 20229194 (Version 2)
Quarter: 2022Q1

REPORT INFORMATION
  Report Type: Spontaneous
  Country: US (occurrence: US)
  Receive Date: 20211225
  Receipt Date: 20220115
  Transmission Date: 20220424
  Serious: No
  Sender: FDA-Public Use
  Company Number: US-JNJFOC-20211164399

PATIENT
  Sex: Female

DRUGS (1)
  1. TREMFYA [Suspect]
     Active Substance: GUSELKUMAB
     Indication: Psoriasis
     Dosage: T 0 WEEKS, 4 WEEKS, THEN EVERY 8 WEEKS
     Route: 065
     Dates: start: 202110

REACTIONS (4)
  - Product dose omission issue [Unknown]
  - Product quality issue [Unknown]
  - Needle issue [Unknown]
  - Accidental exposure to product [Unknown]
